FAERS Safety Report 14094454 (Version 1)
Quarter: 2017Q4

REPORT INFORMATION
  Report Type: Spontaneous
  Country: US (occurrence: US)
  Receive Date: 20171016
  Receipt Date: 20171016
  Transmission Date: 20180321
  Serious: No
  Sender: FDA-Public Use
  Company Number: US-AMGEN-USASP2017037994

PATIENT
  Age: 66 Year
  Sex: Male

DRUGS (5)
  1. VITAMIN C [Concomitant]
     Active Substance: ASCORBIC ACID
  2. PROLIA [Suspect]
     Active Substance: DENOSUMAB
     Indication: OSTEOPOROSIS
     Dosage: 60 MG, Q6MO
     Route: 065
  3. VITAMIN D [Concomitant]
     Active Substance: CHOLECALCIFEROL
  4. GABAPENTIN. [Concomitant]
     Active Substance: GABAPENTIN
  5. VICODIN [Concomitant]
     Active Substance: ACETAMINOPHEN\HYDROCODONE BITARTRATE
     Dosage: UNK UNK, AS NECESSARY

REACTIONS (4)
  - Rhinorrhoea [Unknown]
  - Intentional product misuse [Unknown]
  - Seasonal allergy [Not Recovered/Not Resolved]
  - Eye pruritus [Unknown]
